FAERS Safety Report 13897400 (Version 4)
Quarter: 2018Q1

REPORT INFORMATION
  Report Type: Report from Study
  Country: FR (occurrence: FR)
  Receive Date: 20170823
  Receipt Date: 20180323
  Transmission Date: 20180508
  Serious: Yes (Congenital Anomaly, Other)
  Sender: FDA-Public Use
  Company Number: FR-009507513-1708FRA008681

PATIENT
  Age: 0 Year
  Sex: Female
  Weight: .54 kg

DRUGS (8)
  1. TRANDATE [Concomitant]
     Active Substance: LABETALOL HYDROCHLORIDE
     Dosage: UNK
     Route: 064
  2. CELESTENE (BETAMETHASONE SODIUM PHOSPHATE) [Concomitant]
     Indication: PRODUCT USED FOR UNKNOWN INDICATION
     Dosage: UNK
     Route: 064
  3. TRIUMEQ [Suspect]
     Active Substance: ABACAVIR SULFATE\DOLUTEGRAVIR SODIUM\LAMIVUDINE
     Indication: HIV INFECTION
     Dosage: 1 DF, QD, TABLET
     Route: 064
     Dates: start: 20160401, end: 20170517
  4. TRANDATE [Concomitant]
     Active Substance: LABETALOL HYDROCHLORIDE
     Indication: PRODUCT USED FOR UNKNOWN INDICATION
     Dosage: UNK
     Route: 064
  5. ISENTRESS [Suspect]
     Active Substance: RALTEGRAVIR POTASSIUM
     Indication: HIV INFECTION
     Dosage: UNK
     Route: 064
     Dates: start: 20170517
  6. KIVEXA [Suspect]
     Active Substance: ABACAVIR SULFATE\LAMIVUDINE
     Indication: HIV INFECTION
     Dosage: UNK
     Route: 064
     Dates: start: 20170517
  7. TRANDATE [Concomitant]
     Active Substance: LABETALOL HYDROCHLORIDE
     Dosage: UNK
     Route: 064
  8. ZIDOVUDINE. [Concomitant]
     Active Substance: ZIDOVUDINE
     Dosage: UNK
     Route: 042
     Dates: start: 201706

REACTIONS (9)
  - Neonatal respiratory distress syndrome [Unknown]
  - Patent ductus arteriosus [Recovering/Resolving]
  - Heart disease congenital [Unknown]
  - Bronchopulmonary dysplasia [Unknown]
  - Foetal exposure during pregnancy [Unknown]
  - Foetal growth restriction [Unknown]
  - Premature baby [Unknown]
  - Endocarditis staphylococcal [Unknown]
  - Cardiac operation [Unknown]

NARRATIVE: CASE EVENT DATE: 20170101
